FAERS Safety Report 20566978 (Version 1)
Quarter: 2022Q1

REPORT INFORMATION
  Report Type: Report from Study
  Country: MX (occurrence: MX)
  Receive Date: 20220308
  Receipt Date: 20220308
  Transmission Date: 20220423
  Serious: Yes (Hospitalization)
  Sender: FDA-Public Use
  Company Number: MX-ABBOTT-2022A-1346356

PATIENT
  Age: 2 Year
  Sex: Female
  Weight: 32 kg

DRUGS (4)
  1. EPIVAL [Suspect]
     Active Substance: DIVALPROEX SODIUM
     Indication: Epilepsy
     Dosage: DAILY DOSE 1125 MILLIGRAM, 3 - 3 - 3 , DOSE OF 3 CAPSULES THREE TIMES A DAY
     Route: 048
     Dates: start: 2003
  2. EPIVAL [Suspect]
     Active Substance: DIVALPROEX SODIUM
     Indication: Seizure
  3. KEPPRA [Concomitant]
     Active Substance: LEVETIRACETAM
     Indication: Seizure
     Dosage: DAILY DOSE 10 ML, 5 ML - 0 - 5 ML
     Route: 048
  4. CINITAPRIDE [Concomitant]
     Active Substance: CINITAPRIDE
     Indication: Gastric disorder
     Dosage: DAILY DOSE 3 MILLIGRAM, 1 - 1 -  1
     Route: 048

REACTIONS (3)
  - Gastrooesophageal reflux disease [Recovered/Resolved]
  - Gastrooesophageal reflux disease [Recovered/Resolved]
  - Wrong technique in product usage process [Unknown]

NARRATIVE: CASE EVENT DATE: 20030101
